FAERS Safety Report 6824159-1 (Version None)
Quarter: 2010Q3

REPORT INFORMATION
  Report Type: 
  Country: None (occurrence: None)
  Receive Date: 20100708
  Receipt Date: 20100628
  Transmission Date: 20110219
  Serious: Yes (Other)
  Sender: FDA-Public Use
  Company Number: GB-ABBOTT-10P-167-0654329-00

PATIENT
  Age: 4 Year
  Sex: Male
  Weight: 15 kg

DRUGS (8)
  1. SEVOFLURANE [Suspect]
     Indication: MAINTENANCE OF ANAESTHESIA
     Route: 055
  2. ACETAMINOPHEN [Suspect]
     Indication: PRODUCT USED FOR UNKNOWN INDICATION
     Route: 042
  3. LEVOBUPIVACAINE [Suspect]
     Indication: EPIDURAL ANAESTHESIA
     Dosage: 15ML OF 0.25%
     Route: 008
  4. LEVOBUPIVACAINE [Suspect]
     Dosage: 7 ML OF 0.25%
  5. LEVOBUPIVACAINE [Suspect]
     Dosage: 7 ML OF 0.25%
  6. CLONIDINE [Suspect]
     Indication: EPIDURAL ANAESTHESIA
     Route: 008
  7. PROPOFOL [Suspect]
     Indication: INDUCTION OF ANAESTHESIA
  8. ATRACURIUM [Suspect]
     Indication: ENDOTRACHEAL INTUBATION

REACTIONS (1)
  - ISCHAEMIA [None]
